FAERS Safety Report 6580511-3 (Version None)
Quarter: 2010Q1

REPORT INFORMATION
  Report Type: 
  Country: None (occurrence: None)
  Receive Date: 20100212
  Receipt Date: 20090625
  Transmission Date: 20100710
  Serious: No
  Sender: FDA-Public Use
  Company Number: US-BRISTOL-MYERS SQUIBB COMPANY-14696132

PATIENT
  Age: 70 Year
  Sex: Female

DRUGS (2)
  1. AZACTAM [Suspect]
     Indication: URINARY TRACT INFECTION
     Route: 042
     Dates: start: 20090623
  2. AZACTAM [Suspect]
     Indication: SEPSIS
     Route: 042
     Dates: start: 20090623

REACTIONS (3)
  - HYPOALBUMINAEMIA [None]
  - HYPOCALCAEMIA [None]
  - HYPOPHOSPHATAEMIA [None]
